FAERS Safety Report 25896232 (Version 1)
Quarter: 2025Q4

REPORT INFORMATION
  Report Type: Report from Study
  Country: CO (occurrence: CO)
  Receive Date: 20251008
  Receipt Date: 20251008
  Transmission Date: 20260118
  Serious: Yes (Death, Hospitalization, Other)
  Sender: UCB
  Company Number: CO-UCBSA-2025052548

PATIENT
  Age: 72 Year
  Sex: Male

DRUGS (5)
  1. BRIVARACETAM [Suspect]
     Active Substance: BRIVARACETAM
     Indication: Epilepsy
     Dosage: 10 MILLILITER, 2X/DAY (BID)
     Route: 048
     Dates: start: 20231002, end: 20250724
  2. VALPROIC ACID [Concomitant]
     Active Substance: VALPROIC ACID
     Indication: Seizure
     Dosage: 1250 MILLIGRAM, ONCE DAILY (QD)
     Route: 048
  3. AMLODIPINE [Concomitant]
     Active Substance: AMLODIPINE BESYLATE
     Indication: Product used for unknown indication
     Dosage: UNK
     Route: 048
  4. LOSARTAN [Concomitant]
     Active Substance: LOSARTAN
     Indication: Seizure
     Dosage: UNK
     Route: 048
  5. LORAZEPAM [Concomitant]
     Active Substance: LORAZEPAM
     Indication: Seizure

REACTIONS (2)
  - Seizure [Fatal]
  - Coma [Unknown]

NARRATIVE: CASE EVENT DATE: 20250530
